FAERS Safety Report 5123817-7 (Version None)
Quarter: 2006Q4

REPORT INFORMATION
  Report Type: 
  Country: None (occurrence: None)
  Receive Date: 20061010
  Receipt Date: 20060731
  Transmission Date: 20070319
  Serious: Yes (Other)
  Sender: FDA-Public Use
  Company Number: US-AVENTIS-200616695US

PATIENT
  Sex: Female

DRUGS (6)
  1. LANTUS [Suspect]
     Indication: DIABETES MELLITUS NON-INSULIN-DEPENDENT
     Dates: start: 20050701
  2. LANTUS [Suspect]
     Dates: start: 20060101
  3. OPTICLIK (INSULIN INJECTION PEN) [Suspect]
     Indication: DIABETES MELLITUS NON-INSULIN-DEPENDENT
     Dates: start: 20050701
  4. BYETTA [Concomitant]
     Dosage: DOSE: UNK
  5. HYZAAR [Concomitant]
  6. VYTORIN [Concomitant]

REACTIONS (5)
  - BLOOD GLUCOSE INCREASED [None]
  - CATARACT [None]
  - DIABETIC RETINOPATHY [None]
  - INTRAOCULAR PRESSURE INCREASED [None]
  - VITREOUS HAEMORRHAGE [None]
